FAERS Safety Report 26037714 (Version 1)
Quarter: 2025Q4

REPORT INFORMATION
  Report Type: Spontaneous
  Country: US (occurrence: US)
  Receive Date: 20251112
  Receipt Date: 20251112
  Transmission Date: 20260117
  Serious: No
  Sender: TEVA
  Company Number: US-TEVA-VS-3388744

PATIENT
  Age: 28 Year
  Sex: Female

DRUGS (1)
  1. PRAZOSIN [Suspect]
     Active Substance: PRAZOSIN
     Indication: Post-traumatic stress disorder
     Route: 048

REACTIONS (5)
  - Migraine [Unknown]
  - Product use in unapproved indication [Unknown]
  - Vomiting [Unknown]
  - Nausea [Unknown]
  - Recalled product administered [Unknown]

NARRATIVE: CASE EVENT DATE: 20251001
